FAERS Safety Report 8571507-0 (Version None)
Quarter: 2012Q3

REPORT INFORMATION
  Report Type: 
  Country: None (occurrence: None)
  Receive Date: 20120806
  Receipt Date: 20120727
  Transmission Date: 20120928
  Serious: Yes (Other)
  Sender: FDA-Public Use
  Company Number: BR-JNJFOC-20120800583

PATIENT

DRUGS (2)
  1. REMICADE [Suspect]
     Indication: RHEUMATOID ARTHRITIS
     Route: 042
     Dates: end: 20111214
  2. REMICADE [Suspect]
     Indication: ANKYLOSING SPONDYLITIS
     Route: 042
     Dates: end: 20111214

REACTIONS (5)
  - HEPATIC ENZYME ABNORMAL [None]
  - LIVER DISORDER [None]
  - LATENT TUBERCULOSIS [None]
  - SKIN INFECTION [None]
  - SURGERY [None]
